FAERS Safety Report 15065940 (Version 1)
Quarter: 2018Q2

REPORT INFORMATION
  Report Type: Report from Study
  Country: US (occurrence: US)
  Receive Date: 20180626
  Receipt Date: 20180626
  Transmission Date: 20180711
  Serious: Yes (Other)
  Sender: FDA-Public Use
  Company Number: US-MALLINCKRODT-T201800492

PATIENT
  Age: 64 Year
  Sex: Male

DRUGS (2)
  1. PROGRAF [Suspect]
     Active Substance: TACROLIMUS\TACROLIMUS ANHYDROUS
  2. REPOSITORY CORTICOTROPIN INJECTION [Suspect]
     Active Substance: CORTICOTROPIN
     Indication: NEPHROTIC SYNDROME
     Dosage: 80 UNITS/1 ML, 2 TIMES PER WEEK, SUNDAY/THURSDAY
     Route: 058
     Dates: start: 20180111, end: 20180604

REACTIONS (6)
  - Hypomagnesaemia [Unknown]
  - Abdominal pain upper [Unknown]
  - Hypokalaemia [Unknown]
  - Treatment noncompliance [Unknown]
  - Back pain [Unknown]
  - Injection site pain [Unknown]

NARRATIVE: CASE EVENT DATE: 20180328
